FAERS Safety Report 4630822-3 (Version None)
Quarter: 2005Q2

REPORT INFORMATION
  Report Type: 
  Country: None (occurrence: None)
  Receive Date: 20050408
  Receipt Date: 20050329
  Transmission Date: 20051028
  Serious: Yes (Hospitalization)
  Sender: FDA-Public Use
  Company Number: JP-ROCHE-400778

PATIENT
  Age: 33 Year
  Sex: Male

DRUGS (3)
  1. TAMIFLU [Suspect]
     Indication: INFLUENZA
     Route: 048
  2. CALONAL [Concomitant]
     Dosage: FORM: ORAL (NOS).
     Route: 048
  3. LOXONIN [Concomitant]
     Dosage: FORM: ORAL (NOS).
     Route: 048

REACTIONS (1)
  - STEVENS-JOHNSON SYNDROME [None]
